FAERS Safety Report 25816312 (Version 1)
Quarter: 2025Q3

REPORT INFORMATION
  Report Type: Spontaneous
  Country: KR (occurrence: KR)
  Receive Date: 20250918
  Receipt Date: 20250918
  Transmission Date: 20251021
  Serious: Yes (Other)
  Sender: Kenvue
  Company Number: KR-KENVUE-20250905631

PATIENT

DRUGS (12)
  1. ACETAMINOPHEN [Suspect]
     Active Substance: ACETAMINOPHEN
     Indication: Drug provocation test
     Route: 048
  2. ACETAMINOPHEN [Suspect]
     Active Substance: ACETAMINOPHEN
     Route: 048
  3. CELECOXIB [Suspect]
     Active Substance: CELECOXIB
     Indication: Drug provocation test
     Route: 048
  4. CELECOXIB [Suspect]
     Active Substance: CELECOXIB
     Route: 048
  5. MELOXICAM [Suspect]
     Active Substance: MELOXICAM
     Indication: Drug provocation test
     Route: 048
  6. MELOXICAM [Suspect]
     Active Substance: MELOXICAM
     Route: 048
  7. ASPIRIN [Suspect]
     Active Substance: ASPIRIN
     Indication: Drug provocation test
     Route: 048
  8. ASPIRIN [Suspect]
     Active Substance: ASPIRIN
     Route: 048
  9. ASPIRIN [Suspect]
     Active Substance: ASPIRIN
     Route: 048
  10. ASPIRIN [Suspect]
     Active Substance: ASPIRIN
     Route: 048
  11. ASPIRIN [Suspect]
     Active Substance: ASPIRIN
     Route: 048
  12. ASPIRIN [Suspect]
     Active Substance: ASPIRIN
     Route: 048

REACTIONS (11)
  - Laryngeal oedema [Unknown]
  - Off label use [Unknown]
  - Angioedema [Unknown]
  - Flushing [Unknown]
  - Dyspnoea [Unknown]
  - Cough [Unknown]
  - Nasal obstruction [Unknown]
  - Rhinorrhoea [Unknown]
  - Gastrointestinal disorder [Unknown]
  - Cardiovascular disorder [Unknown]
  - Urticaria [Unknown]
